FAERS Safety Report 4329903-3 (Version None)
Quarter: 2004Q1

REPORT INFORMATION
  Report Type: 
  Country: None (occurrence: None)
  Receive Date: 20040329
  Receipt Date: 20040317
  Transmission Date: 20041129
  Serious: Yes (Life-Threatening, Other)
  Sender: FDA-Public Use
  Company Number: 2002057596

PATIENT
  Age: 49 Year
  Sex: Male
  Weight: 68.5 kg

DRUGS (5)
  1. SULPERAZON (CEFOPERAZONE, SULBACTAM) [Suspect]
     Indication: INFECTION PROPHYLAXIS
     Dosage: 2 GRAM (BID), INTRAVENOUS
     Route: 042
     Dates: start: 20020823, end: 20020909
  2. FLUOROURACIL [Suspect]
     Indication: INFECTION PROPHYLAXIS
     Dosage: 500 MG (DAILY), INTRAVENOUS
     Route: 042
     Dates: start: 20020905, end: 20020909
  3. GABEXATE MESILATE (GABEXATE MESILATE) [Concomitant]
  4. POTASSIUM CANRENOATE (POTASSIUM CANRENOATE) [Concomitant]
  5. FAMOTIDINE [Concomitant]

REACTIONS (11)
  - ACUTE RESPIRATORY FAILURE [None]
  - BLOOD CREATININE INCREASED [None]
  - BLOOD UREA INCREASED [None]
  - CHOLESTASIS [None]
  - DRUG ERUPTION [None]
  - DYSPNOEA [None]
  - ERYTHEMA [None]
  - EXANTHEM [None]
  - HYPOXIA [None]
  - INTERSTITIAL LUNG DISEASE [None]
  - URTICARIA PAPULAR [None]
